FAERS Safety Report 9761620 (Version 1)
Quarter: 2013Q4

REPORT INFORMATION
  Report Type: Spontaneous
  Country: US (occurrence: US)
  Receive Date: 20131216
  Receipt Date: 20131216
  Transmission Date: 20140711
  Serious: No
  Sender: FDA-Public Use
  Company Number: US-PFIZER INC-2013352796

PATIENT
  Age: 73 Year
  Sex: Male

DRUGS (5)
  1. XALKORI [Suspect]
     Indication: LUNG NEOPLASM MALIGNANT
     Dosage: UNK, STRENGTH OF DOSAGE FORM: 250 MG
     Dates: start: 20131108
  2. ASPIRIN [Concomitant]
     Dosage: UNK
  3. IMODIUM A-D [Concomitant]
     Dosage: UNK
  4. IPRATROPIUM-ALBUTEROL [Concomitant]
     Dosage: UNK
  5. SIMVASTATIN [Concomitant]
     Dosage: UNK

REACTIONS (1)
  - Diarrhoea [Unknown]
